FAERS Safety Report 11265690 (Version 1)
Quarter: 2015Q3

REPORT INFORMATION
  Report Type: Spontaneous
  Country: CH (occurrence: CH)
  Receive Date: 20150713
  Receipt Date: 20150713
  Transmission Date: 20151125
  Serious: Yes (Other)
  Sender: FDA-Public Use
  Company Number: CH-PFIZER INC-2015228878

PATIENT
  Age: 39 Year
  Sex: Female

DRUGS (2)
  1. PHENOBARBITAL. [Concomitant]
     Active Substance: PHENOBARBITAL
     Indication: SEIZURE
     Dosage: 30 MG, 2X/DAY
  2. PHENYTOIN. [Suspect]
     Active Substance: PHENYTOIN
     Indication: SEIZURE
     Dosage: 100 MG, 2X/DAY

REACTIONS (2)
  - Toxicity to various agents [Unknown]
  - Cerebellar atrophy [Unknown]
